FAERS Safety Report 24034974 (Version 2)
Quarter: 2024Q3

REPORT INFORMATION
  Report Type: Spontaneous
  Country: DE (occurrence: DE)
  Receive Date: 20240701
  Receipt Date: 20240724
  Transmission Date: 20241016
  Serious: Yes (Other)
  Sender: SANDOZ
  Company Number: DE-SANDOZ-SDZ2024DE061557

PATIENT
  Age: 9 Year
  Sex: Female
  Weight: 20.8 kg

DRUGS (1)
  1. OMNITROPE [Suspect]
     Active Substance: SOMATROPIN
     Indication: Growth hormone deficiency
     Dosage: 0.6 MG, QD
     Route: 058
     Dates: start: 202311

REACTIONS (2)
  - Pulmonary hypertension [Unknown]
  - Pulmonary valve stenosis [Unknown]

NARRATIVE: CASE EVENT DATE: 20240601
